FAERS Safety Report 23678037 (Version 1)
Quarter: 2024Q1

REPORT INFORMATION
  Report Type: Spontaneous
  Country: CN (occurrence: CN)
  Receive Date: 20240327
  Receipt Date: 20240327
  Transmission Date: 20240410
  Serious: Yes (Other)
  Sender: FDA-Public Use
  Company Number: CN-002147023-NVSC2024CN064964

PATIENT
  Age: 64 Year
  Sex: Male
  Weight: 55 kg

DRUGS (1)
  1. OXCARBAZEPINE [Suspect]
     Active Substance: OXCARBAZEPINE
     Indication: Epilepsy
     Dosage: 0.3 G, BID
     Route: 048
     Dates: start: 20240316, end: 20240322

REACTIONS (2)
  - Altered state of consciousness [Unknown]
  - Mental disorder [Unknown]

NARRATIVE: CASE EVENT DATE: 20240322
